FAERS Safety Report 8094433-2 (Version None)
Quarter: 2012Q1

REPORT INFORMATION
  Report Type: 
  Country: None (occurrence: None)
  Receive Date: 20120130
  Receipt Date: 20120118
  Transmission Date: 20120608
  Serious: Yes (Hospitalization)
  Sender: FDA-Public Use
  Company Number: US-JNJFOC-20120109408

PATIENT
  Sex: Female
  Weight: 35.7 kg

DRUGS (18)
  1. TRAMADOL HCL [Concomitant]
  2. CITALOPRAM [Concomitant]
  3. FERROUS SULFATE TAB [Concomitant]
     Route: 050
  4. CIMZIA [Concomitant]
     Dates: start: 20100514
  5. CHOLECALCIFEROL [Concomitant]
     Route: 050
  6. ACETAMINOPHEN [Concomitant]
     Route: 050
  7. CYPROHEPTADINE HCL [Concomitant]
     Route: 050
  8. MULTI-VITAMINS [Concomitant]
  9. REMICADE [Suspect]
     Indication: INFLAMMATORY BOWEL DISEASE
     Route: 042
     Dates: start: 20070802, end: 20080709
  10. MAGNESIUM OXIDE [Concomitant]
     Route: 050
  11. AMITRIPTYLINE HCL [Concomitant]
  12. LANSOPRAZOLE [Concomitant]
  13. DOCUSATE SODIUM [Concomitant]
     Route: 050
  14. CALCIUM CARBONATE [Concomitant]
     Route: 050
  15. ASCORBIC ACID [Concomitant]
     Route: 050
  16. TACROLIMUS [Concomitant]
  17. LIDOCAINE [Concomitant]
     Route: 061
  18. MERCAPTOPURINE [Concomitant]

REACTIONS (1)
  - WEIGHT DECREASED [None]
